FAERS Safety Report 4507115-8 (Version None)
Quarter: 2004Q4

REPORT INFORMATION
  Report Type: 
  Country: None (occurrence: None)
  Receive Date: 20041122
  Receipt Date: 20041112
  Transmission Date: 20050328
  Serious: Yes (Life-Threatening, Hospitalization, Disabling)
  Sender: FDA-Public Use
  Company Number: US-MERCK-0411USA02310

PATIENT
  Age: 54 Year
  Sex: Female

DRUGS (8)
  1. VIOXX [Suspect]
     Indication: ARTHRITIS
     Route: 048
     Dates: start: 19990101, end: 20021125
  2. ZOLOFT [Concomitant]
     Route: 065
  3. ALLEGRA [Concomitant]
     Route: 065
  4. PLAQUENIL [Concomitant]
     Route: 065
  5. XANAX [Concomitant]
     Route: 065
  6. TOPAMAX [Concomitant]
     Route: 065
  7. AMARYL [Concomitant]
     Route: 065
  8. SEROQUEL [Concomitant]
     Route: 065

REACTIONS (2)
  - HYPOTENSION [None]
  - RENAL FAILURE [None]
